FAERS Safety Report 26208247 (Version 1)
Quarter: 2025Q4

REPORT INFORMATION
  Report Type: Spontaneous
  Country: US (occurrence: None)
  Receive Date: 20251226
  Receipt Date: 20251226
  Transmission Date: 20260117
  Serious: No
  Sender: FDA-CTU
  Company Number: None

PATIENT
  Sex: Female

DRUGS (10)
  1. VIGABATRIN [Suspect]
     Active Substance: VIGABATRIN
     Indication: Lennox-Gastaut syndrome
     Dosage: FREQUENCY : TWICE A DAY;
     Route: 048
  2. VALTOCO [Concomitant]
     Active Substance: DIAZEPAM
  3. KEPPRA [Concomitant]
     Active Substance: LEVETIRACETAM
  4. DIASTAT PEDIATRIC [Concomitant]
  5. ALBUTEROL SULFATE [Concomitant]
     Active Substance: ALBUTEROL SULFATE
  6. TRIAMCINOLONE ACETONIDE [Concomitant]
     Active Substance: TRIAMCINOLONE ACETONIDE
  7. CERAVE HYDRATING FACIAL C [Concomitant]
  8. EUCRISA [Concomitant]
     Active Substance: CRISABOROLE
  9. MUPIROCIN [Concomitant]
     Active Substance: MUPIROCIN
  10. VIMPAT [Concomitant]
     Active Substance: LACOSAMIDE

REACTIONS (1)
  - Brain lobectomy [None]
